FAERS Safety Report 6050795-9 (Version None)
Quarter: 2009Q1

REPORT INFORMATION
  Report Type: 
  Country: None (occurrence: None)
  Receive Date: 20090121
  Receipt Date: 20090105
  Transmission Date: 20090719
  Serious: Yes (Other)
  Sender: FDA-Public Use
  Company Number: 2009S1000200

PATIENT
  Age: 60 Year
  Sex: Female

DRUGS (6)
  1. BACLOFEN          (BACLOFEN) (50 MG) [Suspect]
     Indication: MULTIPLE SCLEROSIS
     Dosage: 50 MG
  2. CARBAMAZEPINE [Suspect]
     Indication: DRUG USE FOR UNKNOWN INDICATION
     Dosage: ORAL
     Route: 048
  3. BISOPROLOL [Concomitant]
  4. CITALOPRAM HYDROBROMIDE [Concomitant]
  5. ACETAMINOPHEN [Concomitant]
  6. TRIMETHOPRIM [Concomitant]

REACTIONS (2)
  - DYSPHAGIA [None]
  - PNEUMONIA [None]
